FAERS Safety Report 8553935-2 (Version None)
Quarter: 2012Q3

REPORT INFORMATION
  Report Type: 
  Country: None (occurrence: None)
  Receive Date: 20120731
  Receipt Date: 20120725
  Transmission Date: 20120928
  Serious: Yes (Hospitalization)
  Sender: FDA-Public Use
  Company Number: US-ASTRAZENECA-2012SE40282

PATIENT
  Age: 55 Year
  Sex: Female
  Weight: 90.7 kg

DRUGS (5)
  1. SYMBICORT [Suspect]
     Indication: FUNGAL INFECTION
     Dosage: 160/4.5, TWO TIMES A DAY
     Route: 055
     Dates: start: 20120415
  2. DIOVAN [Concomitant]
  3. SYMBICORT [Suspect]
     Indication: PULMONARY OEDEMA
     Dosage: 160/4.5, TWO TIMES A DAY
     Route: 055
     Dates: start: 20120415
  4. LEVOXYL [Concomitant]
     Indication: THYROID DISORDER
  5. ALBUTEROL SULFATE AUTOHALER [Concomitant]

REACTIONS (4)
  - DRUG INEFFECTIVE FOR UNAPPROVED INDICATION [None]
  - PULMONARY OEDEMA [None]
  - FUNGAL INFECTION [None]
  - OFF LABEL USE [None]
